FAERS Safety Report 7279212-8 (Version None)
Quarter: 2011Q1

REPORT INFORMATION
  Report Type: 
  Country: None (occurrence: None)
  Receive Date: 20110207
  Receipt Date: 20110125
  Transmission Date: 20110831
  Serious: Yes (Other)
  Sender: FDA-Public Use
  Company Number: CA-GENENTECH-293885

PATIENT
  Sex: Male
  Weight: 80 kg

DRUGS (3)
  1. XOLAIR [Suspect]
  2. XOLAIR [Suspect]
  3. XOLAIR [Suspect]
     Indication: ASTHMA
     Dosage: 300 MG, UNK
     Route: 058
     Dates: start: 20061127

REACTIONS (1)
  - NASAL POLYPS [None]
